FAERS Safety Report 5107189-X (Version None)
Quarter: 2006Q3

REPORT INFORMATION
  Report Type: 
  Country: None (occurrence: None)
  Receive Date: 20060913
  Receipt Date: 20060824
  Transmission Date: 20061208
  Serious: Yes (Other)
  Sender: FDA-Public Use
  Company Number: US200608005250

PATIENT
  Age: 58 Year
  Sex: Male

DRUGS (1)
  1. HUMATROPE [Suspect]
     Indication: OSTEOPOROSIS
     Dosage: 48 U, DAILY (1/D),
     Dates: start: 20000101

REACTIONS (9)
  - FATIGUE [None]
  - INJECTION SITE IRRITATION [None]
  - INJECTION SITE PAIN [None]
  - INSOMNIA [None]
  - LIMB DISCOMFORT [None]
  - PAIN [None]
  - SURGERY [None]
  - SUTURE RELATED COMPLICATION [None]
  - WEIGHT DECREASED [None]
